FAERS Safety Report 9019593 (Version 1)
Quarter: 2013Q1

REPORT INFORMATION
  Report Type: Spontaneous
  Country: US (occurrence: US)
  Receive Date: 20130118
  Receipt Date: 20130118
  Transmission Date: 20140127
  Serious: Yes (Death)
  Sender: FDA-Public Use
  Company Number: US-SHIONOGI, INC-2013000071

PATIENT
  Age: 41 Year
  Sex: Female

DRUGS (7)
  1. NAPROXEN [Suspect]
     Dosage: UNK
  2. AMLODIPINE [Suspect]
     Dosage: UNK
  3. AMITRIPTYLINE HCL [Suspect]
     Dosage: UNK
  4. ACETAMINOPHEN [Suspect]
     Dosage: UNK
  5. OPIOIDS [Suspect]
     Dosage: UNK
  6. BARBITURATES AND DERIVATIVES [Suspect]
     Dosage: UNK
  7. BENZODIAZEPINE DERIVATIVES [Suspect]
     Dosage: UNK

REACTIONS (2)
  - Cardio-respiratory arrest [Fatal]
  - Completed suicide [Fatal]
